FAERS Safety Report 6380324-1 (Version None)
Quarter: 2009Q3

REPORT INFORMATION
  Report Type: 
  Country: None (occurrence: None)
  Receive Date: 20090929
  Receipt Date: 20090918
  Transmission Date: 20100115
  Serious: Yes (Hospitalization)
  Sender: FDA-Public Use
  Company Number: FR-ROCHE-657835

PATIENT
  Sex: Male

DRUGS (7)
  1. CAPECITABINE [Suspect]
     Indication: METASTATIC GASTRIC CANCER
     Dosage: INITIAL DOSE
     Route: 048
     Dates: start: 20070315
  2. CAPECITABINE [Suspect]
     Dosage: REDUCTION OF DOSE TO 75% OF INITIAL DOSE
     Route: 048
  3. CAPECITABINE [Suspect]
     Dosage: REDUCTION OF DOSE TO 50% OF INITIAL DOSE
     Route: 048
  4. CISPLATIN [Suspect]
     Indication: METASTATIC GASTRIC CANCER
     Route: 065
     Dates: start: 20070315
  5. CISPLATIN [Suspect]
     Dosage: DOSE REDUCTION TO 75% OF INITIAL DOSE
     Route: 065
  6. EPIRUBICIN HCL [Suspect]
     Indication: METASTATIC GASTRIC CANCER
     Route: 065
     Dates: start: 20070315
  7. EPIRUBICIN HCL [Suspect]
     Dosage: DOSE REDUCTION TO 75% OF INITIAL DOSE
     Route: 065

REACTIONS (4)
  - BALANCE DISORDER [None]
  - FALL [None]
  - HYPOKALAEMIA [None]
  - METABOLIC ALKALOSIS [None]
